FAERS Safety Report 5191833-5 (Version None)
Quarter: 2006Q4

REPORT INFORMATION
  Report Type: 
  Country: None (occurrence: None)
  Receive Date: 20061227
  Receipt Date: 20061220
  Transmission Date: 20070319
  Serious: Yes (Death)
  Sender: FDA-Public Use
  Company Number: RU-JNJFOC-20061205219

PATIENT
  Age: 74 Year
  Sex: Male

DRUGS (5)
  1. LEVOFLOXACIN [Suspect]
     Indication: PNEUMONIA
     Route: 042
  2. FAMOTIDINE [Concomitant]
     Indication: PROPHYLAXIS
     Route: 042
     Dates: start: 20061128, end: 20061213
  3. METOCLOPRAMIDE [Concomitant]
     Indication: PROPHYLAXIS
     Route: 042
  4. UNKNOWN DRUG [Concomitant]
     Indication: SEDATION
     Route: 042
  5. UNKNOWN DRUG [Concomitant]
     Indication: PROPHYLAXIS
     Route: 042

REACTIONS (1)
  - CARDIAC FAILURE ACUTE [None]
